FAERS Safety Report 5822238-9 (Version None)
Quarter: 2008Q3

REPORT INFORMATION
  Report Type: 
  Country: None (occurrence: None)
  Receive Date: 20080725
  Receipt Date: 20080515
  Transmission Date: 20090109
  Serious: No
  Sender: FDA-Public Use
  Company Number: US-AMGEN-KDL273465

PATIENT
  Sex: Female
  Weight: 81.7 kg

DRUGS (8)
  1. PROCRIT [Suspect]
     Indication: RENAL FAILURE CHRONIC
     Dates: start: 20060606
  2. INFED [Concomitant]
     Route: 042
  3. REGLAN [Concomitant]
  4. COZAAR [Concomitant]
  5. CARDIZEM [Concomitant]
  6. CLONIDINE [Concomitant]
  7. AMBIEN [Concomitant]
  8. ZEMPLAR [Concomitant]

REACTIONS (2)
  - SURGERY [None]
  - THERAPEUTIC RESPONSE DECREASED [None]
